FAERS Safety Report 6120571-7 (Version None)
Quarter: 2009Q1

REPORT INFORMATION
  Report Type: 
  Country: None (occurrence: None)
  Receive Date: 20090312
  Receipt Date: 20090312
  Transmission Date: 20090719
  Serious: Yes (Other)
  Sender: FDA-Public Use
  Company Number: None

PATIENT
  Age: 86 Year
  Sex: Female

DRUGS (8)
  1. FOSAMAX PLUS D [Suspect]
     Indication: OSTEOPOROSIS
     Dosage: TAKE AS DIRECTED (PATIENT STATES SINCE THE MEDICATION HAS BEEN OUT MORE THAN 10YRS)
  2. SYNTHROID [Concomitant]
  3. DETROL LA [Concomitant]
  4. PREDNISONE [Concomitant]
  5. PLAQUENIL [Concomitant]
  6. AVAPRO [Concomitant]
  7. FOLIC ACID [Concomitant]
  8. NEXIUM [Concomitant]

REACTIONS (2)
  - BONE DISORDER [None]
  - GINGIVAL HYPERTROPHY [None]
